FAERS Safety Report 4542782-4 (Version None)
Quarter: 2004Q4

REPORT INFORMATION
  Report Type: 
  Country: None (occurrence: None)
  Receive Date: 20041231
  Receipt Date: 20040531
  Transmission Date: 20050328
  Serious: Yes (Hospitalization, Other)
  Sender: FDA-Public Use
  Company Number: 200411891JP

PATIENT
  Age: 38 Year
  Sex: Female
  Weight: 58 kg

DRUGS (5)
  1. ARAVA [Suspect]
     Indication: RHEUMATOID ARTHRITIS
     Route: 048
     Dates: start: 20040122, end: 20040706
  2. RIMATIL [Concomitant]
     Route: 048
  3. RHEUMATREX [Concomitant]
     Route: 048
     Dates: end: 20040317
  4. PREDNISOLONE [Concomitant]
     Route: 048
     Dates: start: 20040624, end: 20040623
  5. VOLTAREN SUPPOSITORIEN [Concomitant]
     Route: 054

REACTIONS (11)
  - ALANINE AMINOTRANSFERASE INCREASED [None]
  - ASPARTATE AMINOTRANSFERASE INCREASED [None]
  - BLOOD LACTATE DEHYDROGENASE INCREASED [None]
  - DIALYSIS [None]
  - DIARRHOEA [None]
  - MONOCYTE PERCENTAGE INCREASED [None]
  - NAUSEA [None]
  - RED BLOOD CELL COUNT DECREASED [None]
  - RENAL FAILURE ACUTE [None]
  - VOMITING [None]
  - WHITE BLOOD CELL COUNT INCREASED [None]
